FAERS Safety Report 12784237 (Version 1)
Quarter: 2016Q3

REPORT INFORMATION
  Report Type: Spontaneous
  Country: US (occurrence: US)
  Receive Date: 20160927
  Receipt Date: 20160927
  Transmission Date: 20161109
  Serious: No
  Sender: FDA-Public Use
  Company Number: US-009507513-1609USA007869

PATIENT
  Age: 59 Year
  Sex: Male
  Weight: 65.76 kg

DRUGS (1)
  1. BELSOMRA [Suspect]
     Active Substance: SUVOREXANT
     Indication: SLEEP DISORDER
     Dosage: 20 MG, QD (1 PILL A DAY)
     Route: 048

REACTIONS (1)
  - Drug ineffective [Unknown]
